FAERS Safety Report 4287183-1 (Version None)
Quarter: 2004Q1

REPORT INFORMATION
  Report Type: 
  Country: None (occurrence: None)
  Receive Date: 20040126
  Receipt Date: 20030822
  Transmission Date: 20041129
  Serious: No
  Sender: FDA-Public Use
  Company Number: USA030845151

PATIENT
  Age: 79 Year
  Sex: Female

DRUGS (2)
  1. FORTEO [Suspect]
     Indication: OSTEOPOROSIS
     Dosage: 20 UG/DAY
     Dates: start: 20030812
  2. PAXIL (PARAOXETINE HYDROCHLORIDE) [Concomitant]

REACTIONS (2)
  - INJECTION SITE ERYTHEMA [None]
  - NERVOUSNESS [None]
